FAERS Safety Report 9210147 (Version 2)
Quarter: 2013Q2

REPORT INFORMATION
  Report Type: Report from Study
  Country: CA (occurrence: CA)
  Receive Date: 20130404
  Receipt Date: 20130618
  Transmission Date: 20140414
  Serious: Yes (Hospitalization)
  Sender: FDA-Public Use
  Company Number: CA-ROCHE-1181086

PATIENT
  Age: 73 Year
  Sex: Female

DRUGS (13)
  1. RITUXAN [Suspect]
     Indication: RHEUMATOID ARTHRITIS
     Dosage: LAST DOSE PRIOR TO AE ON 13/SEP/2012
     Route: 042
     Dates: start: 20120830
  2. REMICADE [Suspect]
     Indication: RHEUMATOID ARTHRITIS
     Route: 065
  3. PREDNISONE [Concomitant]
  4. PLAQUENIL [Concomitant]
  5. ZOCOR [Concomitant]
  6. LOPRESSOR [Concomitant]
  7. AVAPRO [Concomitant]
  8. ASA [Concomitant]
  9. PANTOLOC [Concomitant]
  10. METHYLPREDNISOLON [Concomitant]
     Indication: PREMEDICATION
     Route: 042
     Dates: start: 20120830
  11. LYRICA [Concomitant]
  12. CLONIDINE [Concomitant]
  13. SYNTHROID [Concomitant]

REACTIONS (5)
  - Diverticulitis [Recovering/Resolving]
  - Hypertension [Recovering/Resolving]
  - Cardiac disorder [Recovering/Resolving]
  - Impaired healing [Not Recovered/Not Resolved]
  - Fatigue [Not Recovered/Not Resolved]
